FAERS Safety Report 8312584-1 (Version None)
Quarter: 2012Q2

REPORT INFORMATION
  Report Type: 
  Country: None (occurrence: None)
  Receive Date: 20120425
  Receipt Date: 20120425
  Transmission Date: 20120825
  Serious: No
  Sender: FDA-Public Use
  Company Number: None

PATIENT

DRUGS (1)
  1. CAMBIA [Suspect]
     Indication: MIGRAINE
     Dosage: 50 MILLIGRAMS PACKET - 1 PK
     Dates: start: 20120416, end: 20120416

REACTIONS (1)
  - DRUG HYPERSENSITIVITY [None]
